FAERS Safety Report 16713598 (Version 1)
Quarter: 2019Q3

REPORT INFORMATION
  Report Type: Spontaneous
  Country: US (occurrence: US)
  Receive Date: 20190819
  Receipt Date: 20190819
  Transmission Date: 20191004
  Serious: No
  Sender: FDA-Public Use
  Company Number: US-ELI_LILLY_AND_COMPANY-US201907015255

PATIENT
  Sex: Female

DRUGS (2)
  1. HUMALOG [Suspect]
     Active Substance: INSULIN LISPRO
     Indication: BLOOD GLUCOSE ABNORMAL
     Dosage: UNK UNK, UNKNOWN
     Route: 065
     Dates: start: 201906
  2. TOUJEO [Concomitant]
     Active Substance: INSULIN GLARGINE
     Indication: PRODUCT USED FOR UNKNOWN INDICATION
     Dosage: 22 U, EACH EVENING

REACTIONS (7)
  - Headache [Unknown]
  - Blood glucose increased [Unknown]
  - Neck pain [Unknown]
  - Pain in extremity [Unknown]
  - Fatigue [Unknown]
  - Musculoskeletal pain [Unknown]
  - Sleep disorder due to general medical condition, insomnia type [Unknown]
